FAERS Safety Report 4548929-8 (Version None)
Quarter: 2005Q1

REPORT INFORMATION
  Report Type: 
  Country: None (occurrence: None)
  Receive Date: 20041227
  Receipt Date: 20041105
  Transmission Date: 20050727
  Serious: No
  Sender: FDA-Public Use
  Company Number: 04P-163-0279849-00

PATIENT
  Age: 68 Year
  Sex: Female
  Weight: 81.6475 kg

DRUGS (4)
  1. HUMIRA [Suspect]
     Indication: RHEUMATOID ARTHRITIS
     Dosage: 40 MG, 1 IN 2 WK, ORAL
     Route: 048
     Dates: start: 20041006, end: 20041021
  2. NIEFEDIPINE [Concomitant]
  3. ATORVASTATN [Concomitant]
  4. SERTRALINE HYDROCHLORIDE [Concomitant]

REACTIONS (4)
  - DIABETES MELLITUS [None]
  - HYPERTENSION [None]
  - JOINT SWELLING [None]
  - OEDEMA PERIPHERAL [None]
